FAERS Safety Report 5061358-6 (Version None)
Quarter: 2006Q3

REPORT INFORMATION
  Report Type: 
  Country: None (occurrence: None)
  Receive Date: 20060725
  Receipt Date: 20060720
  Transmission Date: 20061208
  Serious: Yes (Hospitalization)
  Sender: FDA-Public Use
  Company Number: US-GLAXOSMITHKLINE-A0612936A

PATIENT
  Age: 79 Year
  Sex: Female

DRUGS (9)
  1. CITRUCEL REGULAR SUSPENSION [Suspect]
     Indication: CONSTIPATION
     Dosage: 1Z PER DAY
  2. LISINOPRIL [Concomitant]
     Dosage: 20MG PER DAY
  3. ATENOLOL [Concomitant]
  4. BETA CAROTENE [Concomitant]
  5. OS-CAL 500 + D [Concomitant]
  6. ZINC [Concomitant]
  7. MULTI-VITAMIN [Concomitant]
  8. ASCORBIC ACID [Concomitant]
  9. MAGNESIUM [Concomitant]

REACTIONS (3)
  - FALL [None]
  - GAIT DISTURBANCE [None]
  - PANCREATIC MASS [None]
